FAERS Safety Report 5922710-7 (Version None)
Quarter: 2008Q3

REPORT INFORMATION
  Report Type: 
  Country: None (occurrence: None)
  Receive Date: 20080909
  Receipt Date: 20080710
  Transmission Date: 20090109
  Serious: Yes (Hospitalization, Other)
  Sender: FDA-Public Use
  Company Number: 163-20785-08070524

PATIENT
  Age: 78 Year
  Sex: Male

DRUGS (14)
  1. THALOMID [Suspect]
     Indication: MULTIPLE MYELOMA
     Dosage: 150 MG, 1 IN 1 D, ORAL
     Route: 048
     Dates: start: 20080306, end: 20080501
  2. THALOMID [Suspect]
     Indication: MULTIPLE MYELOMA
     Dosage: 150 MG, 1 IN 1 D, ORAL
     Route: 048
     Dates: start: 20080507
  3. COUMADIN [Concomitant]
  4. PLAVIX [Concomitant]
  5. FLOMAX [Concomitant]
  6. MAGACE (MEGESTROL ACETATE) [Concomitant]
  7. ALUMINUM HYDROXIDE AND MAGNESIUM TRISILICATE [Concomitant]
  8. NORVASC [Concomitant]
  9. LASIX [Concomitant]
  10. ATIVAN [Concomitant]
  11. ALDACTONE [Concomitant]
  12. COSOPT (COSOPT) [Concomitant]
  13. TRAVATAN [Concomitant]
  14. PERCOCET [Concomitant]

REACTIONS (1)
  - THROMBOSIS [None]
